FAERS Safety Report 9907590 (Version 1)
Quarter: 2014Q1

REPORT INFORMATION
  Report Type: Spontaneous
  Country: DE (occurrence: DE)
  Receive Date: 20140218
  Receipt Date: 20140218
  Transmission Date: 20141002
  Serious: Yes (Hospitalization)
  Sender: FDA-Public Use
  Company Number: DE-US-EMD SERONO, INC.-7269510

PATIENT
  Age: 41 Year
  Sex: Female
  Weight: 118 kg

DRUGS (1)
  1. REBIF [Suspect]
     Indication: MULTIPLE SCLEROSIS
     Route: 058
     Dates: start: 20110408

REACTIONS (3)
  - Pain in extremity [Recovered/Resolved]
  - Diplegia [Recovered/Resolved]
  - Central nervous system lesion [Unknown]
